FAERS Safety Report 7876530-7 (Version None)
Quarter: 2011Q4

REPORT INFORMATION
  Report Type: 
  Country: None (occurrence: None)
  Receive Date: 20111031
  Receipt Date: 20111021
  Transmission Date: 20120403
  Serious: Yes (Other)
  Sender: FDA-Public Use
  Company Number: BR-ASTRAZENECA-2011SE64463

PATIENT
  Age: 63 Year
  Sex: Female
  Weight: 75 kg

DRUGS (8)
  1. ASPIRIN [Concomitant]
  2. NPH INSULIN [Concomitant]
  3. GLYBURIDE [Concomitant]
  4. CAPTOPRIL [Concomitant]
  5. NPH INSULIN [Concomitant]
  6. NPH INSULIN [Concomitant]
     Dates: start: 20110401
  7. SIMVASTATIN [Concomitant]
  8. METOPROLOL SUCCINATE [Suspect]
     Route: 048

REACTIONS (14)
  - ONYCHOMYCOSIS [None]
  - POLYURIA [None]
  - HYPERTENSION [None]
  - VISION BLURRED [None]
  - OBESITY [None]
  - HEPATIC STEATOSIS [None]
  - ISCHAEMIC STROKE [None]
  - ACUTE MYOCARDIAL INFARCTION [None]
  - POLYDIPSIA [None]
  - HYPOGLYCAEMIA [None]
  - INCREASED APPETITE [None]
  - BLOOD GLUCOSE FLUCTUATION [None]
  - MYALGIA [None]
  - WEIGHT DECREASED [None]
